FAERS Safety Report 25890718 (Version 4)
Quarter: 2025Q4

REPORT INFORMATION
  Report Type: Spontaneous
  Country: JP (occurrence: JP)
  Receive Date: 20251007
  Receipt Date: 20251117
  Transmission Date: 20260118
  Serious: Yes (Other)
  Sender: MALLINCKRODT
  Company Number: JP-MALLINCKRODT-MNK202506167

PATIENT
  Age: 70 Year
  Sex: Female

DRUGS (1)
  1. NITRIC OXIDE [Suspect]
     Active Substance: NITRIC OXIDE
     Indication: Pulmonary hypertension
     Dosage: UNKNOWN
     Route: 055

REACTIONS (2)
  - Pulmonary hypertensive crisis [Recovered/Resolved]
  - Pericardial haemorrhage [Recovered/Resolved]
